FAERS Safety Report 7064076-8 (Version None)
Quarter: 2010Q4

REPORT INFORMATION
  Report Type: 
  Country: None (occurrence: None)
  Receive Date: 20101027
  Receipt Date: 20101021
  Transmission Date: 20110411
  Serious: Yes (Hospitalization)
  Sender: FDA-Public Use
  Company Number: US-SHIRE-SPV1-2010-01836

PATIENT
  Age: 20 Month
  Sex: Male

DRUGS (3)
  1. ADDERALL XR 10 [Suspect]
  2. METHAMPHETAMINE [Suspect]
  3. OXYCODONE AND ACETAMINOPHEN [Suspect]

REACTIONS (5)
  - ACCIDENTAL DRUG INTAKE BY CHILD [None]
  - APNOEA [None]
  - CYANOSIS [None]
  - UNRESPONSIVE TO STIMULI [None]
  - VOMITING [None]
